FAERS Safety Report 9894103 (Version 2)
Quarter: 2014Q1

REPORT INFORMATION
  Report Type: Spontaneous
  Country: FR (occurrence: FR)
  Receive Date: 20140213
  Receipt Date: 20140226
  Transmission Date: 20141002
  Serious: Yes (Hospitalization)
  Sender: FDA-Public Use
  Company Number: FR-PFIZER INC-2014038212

PATIENT
  Age: 64 Year
  Sex: Female

DRUGS (7)
  1. SOLU-MEDROL [Suspect]
     Dosage: 60 MG BY COURSE
     Route: 042
     Dates: start: 20130904, end: 20131220
  2. MYOCET [Suspect]
     Indication: BREAST NEOPLASM
     Dosage: 132.75 MG BY COURSE (6 CYCLES)
     Route: 042
     Dates: start: 20130904, end: 20131220
  3. MYOCET [Suspect]
     Dosage: 132.75 MG BY COURSE (6 CYCLES)
     Route: 042
     Dates: start: 20130904, end: 20131220
  4. MYOCET [Suspect]
     Dosage: 132.75 MG BY COURSE (6 CYCLES)
     Route: 042
     Dates: start: 20130904, end: 20131220
  5. ENDOXAN [Suspect]
     Indication: BREAST NEOPLASM
     Dosage: 1062 MG BY COURSE
     Route: 042
     Dates: start: 20130904, end: 20131220
  6. ZOPHREN [Suspect]
     Dosage: 8 MG BY COURSE
     Route: 042
     Dates: start: 20130904, end: 20131220
  7. LYTOS [Suspect]
     Dosage: 1040 MG
     Route: 048
     Dates: start: 20130904

REACTIONS (1)
  - Ejection fraction decreased [Not Recovered/Not Resolved]
